FAERS Safety Report 8799664 (Version 1)
Quarter: 2012Q4

REPORT INFORMATION
  Report Type: 
  Country: US (occurrence: US)
  Receive Date: 20120919
  Receipt Date: 20120919
  Transmission Date: 20130627
  Serious: No
  Sender: FDA-Public Use
  Company Number: US-009507513-1208USA009374

PATIENT

DRUGS (2)
  1. PEG-INTRON [Suspect]
     Indication: HEPATITIS C
     Dosage: UNK
     Dates: start: 20120729
  2. REBETOL [Suspect]
     Indication: HEPATITIS C
     Dosage: UNK
     Dates: start: 20120729

REACTIONS (6)
  - Somnolence [Unknown]
  - Mood swings [Unknown]
  - Pain [Unknown]
  - Back pain [Unknown]
  - Dizziness [Unknown]
  - Irritability [Unknown]
